FAERS Safety Report 8623474-9 (Version None)
Quarter: 2012Q3

REPORT INFORMATION
  Report Type: 
  Country: None (occurrence: None)
  Receive Date: 20120824
  Receipt Date: 20120824
  Transmission Date: 20120928
  Serious: Yes (Hospitalization)
  Sender: FDA-Public Use
  Company Number: None

PATIENT
  Sex: Female
  Weight: 42.6381 kg

DRUGS (1)
  1. FOSAMAX [Suspect]
     Indication: OSTEOPOROSIS
     Dosage: ORALLY ONCE A WEEK
     Dates: start: 20001115, end: 20100101

REACTIONS (2)
  - PATHOLOGICAL FRACTURE [None]
  - FEMUR FRACTURE [None]
